FAERS Safety Report 9141803 (Version 5)
Quarter: 2013Q4

REPORT INFORMATION
  Report Type: Spontaneous
  Country: US (occurrence: US)
  Receive Date: 20130305
  Receipt Date: 20131016
  Transmission Date: 20140711
  Serious: Yes (Hospitalization, Disabling, Other)
  Sender: FDA-Public Use
  Company Number: US-009507513-1103USA00955

PATIENT
  Sex: Female
  Weight: 63.39 kg

DRUGS (4)
  1. FOSAMAX [Suspect]
     Indication: OSTEOPENIA
     Dosage: 10 MG, QD
     Route: 048
     Dates: start: 19991227, end: 200012
  2. FOSAMAX [Suspect]
     Indication: OSTEOPOROSIS
     Dosage: 70 MG, QW
     Route: 048
     Dates: start: 20010126, end: 200802
  3. ALENDRONATE SODIUM [Suspect]
     Indication: OSTEOPENIA
     Dosage: 70 MG, QW
     Route: 048
     Dates: start: 20080305, end: 201008
  4. ALENDRONATE SODIUM [Suspect]
     Indication: OSTEOPOROSIS

REACTIONS (43)
  - Open reduction of fracture [Unknown]
  - Femur fracture [Recovered/Resolved]
  - Femur fracture [Unknown]
  - Osteoporosis [Unknown]
  - Stress fracture [Unknown]
  - Low turnover osteopathy [Unknown]
  - Renal failure chronic [Unknown]
  - Haemorrhagic anaemia [Unknown]
  - Hip arthroplasty [Unknown]
  - Packed red blood cell transfusion [Unknown]
  - Hyperglycaemia [Unknown]
  - Device failure [Recovered/Resolved]
  - Hypomagnesaemia [Unknown]
  - Open reduction of fracture [Unknown]
  - Fracture nonunion [Recovered/Resolved]
  - Dizziness [Unknown]
  - Herpes zoster [Unknown]
  - Hypertension [Unknown]
  - Cardiac murmur [Unknown]
  - Cataract operation [Unknown]
  - Anxiety [Unknown]
  - Bunion operation [Unknown]
  - Hyperlipidaemia [Unknown]
  - Osteoarthritis [Unknown]
  - Depression [Unknown]
  - Spinal osteoarthritis [Unknown]
  - Nocturia [Unknown]
  - Osteoarthritis [Unknown]
  - Impaired healing [Unknown]
  - Upper limb fracture [Unknown]
  - Nodule [Unknown]
  - Body height decreased [Unknown]
  - Gastric haemorrhage [Unknown]
  - Oesophageal haemorrhage [Unknown]
  - Spinal osteoarthritis [Unknown]
  - Pain in extremity [Unknown]
  - Pain in extremity [Unknown]
  - Gastritis [Not Recovered/Not Resolved]
  - Gastritis [Unknown]
  - Dysphagia [Unknown]
  - Oesophagitis [Not Recovered/Not Resolved]
  - Transfusion [Unknown]
  - Haemorrhagic anaemia [Unknown]
